FAERS Safety Report 10221648 (Version 3)
Quarter: 2014Q3

REPORT INFORMATION
  Report Type: Spontaneous
  Country: CA (occurrence: CA)
  Receive Date: 20140606
  Receipt Date: 20140715
  Transmission Date: 20150326
  Serious: Yes (Other)
  Sender: FDA-Public Use
  Company Number: CA-PFIZER INC-2014151276

PATIENT
  Age: 89 Year
  Sex: Female

DRUGS (18)
  1. SENOKOT-S [Concomitant]
     Active Substance: DOCUSATE SODIUM\SENNOSIDES
     Dosage: 1 TABLET AT BEDTIME
  2. APO-LORAZEPAM [Concomitant]
     Dosage: 1.0 MG, AT BEDTIME
  3. RABEPRAZOLE [Concomitant]
     Active Substance: RABEPRAZOLE
     Dosage: 20 MG, 1X/DAY
  4. SENOKOT-S [Concomitant]
     Active Substance: DOCUSATE SODIUM\SENNOSIDES
     Dosage: 1 TABLET WHEN REQUIRED
  5. RATIO-CODEINE [Concomitant]
     Dosage: 30 MG (1 TABLET), 2X/DAY
  6. REX VITAMIN D [Concomitant]
     Dosage: 400 IU, 1X/DAY
  7. APO-DIMENHYDRINATE [Concomitant]
     Dosage: 12.5 MG (1/4 OF 50MG) EVERY 12 HOURS
     Route: 048
  8. APO-LORAZEPAM [Concomitant]
     Dosage: 0.5 MG 1 TABLET  IN THE MORNING
  9. CITALOPRAM [Concomitant]
     Active Substance: CITALOPRAM HYDROBROMIDE
     Dosage: 20 MG ( 1TABLET) AT BEDTIME
  10. MYLAN-NIFEDIPINE ER [Concomitant]
     Dosage: 1 TABLET IN THE MORNING AND 1 TABLET BEDTIME,
  11. SYNTHROID [Concomitant]
     Active Substance: LEVOTHYROXINE SODIUM
     Dosage: 0.075 MG, 1X/DAY
  12. TOVIAZ [Suspect]
     Active Substance: FESOTERODINE FUMARATE
     Indication: HYPERTONIC BLADDER
     Dosage: 4 MG, 1X/DAY (BEDTIME)
     Route: 048
     Dates: start: 20140403, end: 20140425
  13. TARO-WARFARIN [Concomitant]
     Active Substance: WARFARIN
     Indication: ANTICOAGULANT THERAPY
     Dosage: 5 MG, DAILY, IF INR 2-3
  14. APO-ACETAMINOPHEN [Concomitant]
     Dosage: 650 MG (2 TABLETS OF 325MG), 4X/DAY
  15. RATIO-CODEINE [Concomitant]
     Indication: PAIN
     Dosage: 15 MG, EVERY 4 HOURS AS NEEDED FOR PAIN
  16. GENTEAL ARTIFICIAL TEAR [Concomitant]
     Dosage: 1 DROP (3MG) IN EACH EYE TWICE A DAY
     Route: 047
  17. APO-ISMN [Concomitant]
     Dosage: 60 MG, 1X/DAY
  18. APO-METOPROLOL [Concomitant]
     Dosage: 1 TABLET, 2X/DAY

REACTIONS (2)
  - Fluid retention [Recovered/Resolved]
  - Oedema [Recovered/Resolved]

NARRATIVE: CASE EVENT DATE: 201404
